FAERS Safety Report 4960479-3 (Version None)
Quarter: 2006Q2

REPORT INFORMATION
  Report Type: 
  Country: None (occurrence: None)
  Receive Date: 20060403
  Receipt Date: 20040429
  Transmission Date: 20061013
  Serious: Yes (Other)
  Sender: FDA-Public Use
  Company Number: PHEH2004US04804

PATIENT
  Age: 57 Year
  Sex: Female
  Weight: 80.272 kg

DRUGS (1)
  1. ZOMETA [Suspect]
     Indication: NON-HODGKIN'S LYMPHOMA
     Dosage: 4 MG MONTHLY
     Route: 042
     Dates: start: 20021104, end: 20040324

REACTIONS (14)
  - BONE DISORDER [None]
  - DENTAL PROSTHESIS PLACEMENT [None]
  - GINGIVAL INFECTION [None]
  - JAW OPERATION [None]
  - ORAL SOFT TISSUE DISORDER [None]
  - OSTEOMYELITIS [None]
  - OSTEONECROSIS [None]
  - PAIN IN JAW [None]
  - PRIMARY SEQUESTRUM [None]
  - SOFT TISSUE INFECTION [None]
  - SWELLING [None]
  - TOOTH DISORDER [None]
  - TOOTH EXTRACTION [None]
  - WOUND DEBRIDEMENT [None]
